FAERS Safety Report 5806091-5 (Version None)
Quarter: 2008Q3

REPORT INFORMATION
  Report Type: 
  Country: None (occurrence: None)
  Receive Date: 20080710
  Receipt Date: 20080707
  Transmission Date: 20090109
  Serious: Yes (Death, Hospitalization)
  Sender: FDA-Public Use
  Company Number: FR-WYE-G01823708

PATIENT
  Sex: Female

DRUGS (13)
  1. TAZOCILLINE [Suspect]
     Dosage: 8 G TOTAL DAILY
     Route: 042
     Dates: start: 20080321, end: 20080331
  2. TAZOCILLINE [Suspect]
     Dosage: 12 G TOTAL DAILY
     Route: 042
     Dates: start: 20080401, end: 20080409
  3. PREVISCAN [Concomitant]
     Dosage: UNKNOWN
     Route: 048
  4. ATACAND [Concomitant]
     Dosage: UNKNOWN
     Route: 048
  5. NEXIUM [Concomitant]
     Dosage: UNKNOWN
  6. COLCHICINE [Concomitant]
     Dosage: UNKNOWN
  7. LASIX [Concomitant]
     Dosage: UNKNOWN
  8. SOLUPRED [Concomitant]
     Dosage: UNKNOWN
  9. VENTOLIN [Concomitant]
     Dosage: UNKNOWN
  10. IMOVANE [Concomitant]
  11. DAFALGAN [Concomitant]
     Dosage: UNKNOWN
  12. ROCEPHIN [Suspect]
     Dosage: UNKNOWN
     Route: 042
     Dates: start: 20080312, end: 20080321
  13. HEMIGOXINE NATIVELLE [Concomitant]
     Dosage: UNKNOWN

REACTIONS (9)
  - ALTERED STATE OF CONSCIOUSNESS [None]
  - CARDIOGENIC SHOCK [None]
  - CLOSTRIDIUM DIFFICILE COLITIS [None]
  - CONDITION AGGRAVATED [None]
  - MULTI-ORGAN FAILURE [None]
  - MUSCLE HAEMORRHAGE [None]
  - PSEUDOMEMBRANOUS COLITIS [None]
  - RETROPERITONEAL HAEMATOMA [None]
  - SEPTIC SHOCK [None]
